FAERS Safety Report 21968063 (Version 1)
Quarter: 2023Q1

REPORT INFORMATION
  Report Type: Other
  Country: US (occurrence: None)
  Receive Date: 20230208
  Receipt Date: 20230208
  Transmission Date: 20230418
  Serious: Yes (Hospitalization, Other)
  Sender: FDA-Public Use
  Company Number: US-ROCHE-3276235

PATIENT
  Age: 56 Year
  Sex: Female
  Weight: 102.60 kg

DRUGS (1)
  1. OCREVUS [Suspect]
     Active Substance: OCRELIZUMAB
     Indication: Relapsing-remitting multiple sclerosis
     Dosage: YES, DOT:2018-11-27, 2018-11-13
     Route: 042

REACTIONS (10)
  - Colitis [Recovered/Resolved]
  - Gastroenteritis salmonella [Recovered/Resolved]
  - Pneumonia [Recovered/Resolved]
  - Intestinal perforation [Recovered/Resolved]
  - Intestinal obstruction [Recovered/Resolved]
  - Gait inability [Recovered/Resolved]
  - Weight fluctuation [Not Recovered/Not Resolved]
  - Sepsis [Recovered/Resolved]
  - Thrombosis [Not Recovered/Not Resolved]
  - Bedridden [Recovered/Resolved]

NARRATIVE: CASE EVENT DATE: 20220101
